FAERS Safety Report 5206840-3 (Version None)
Quarter: 2007Q1

REPORT INFORMATION
  Report Type: 
  Country: None (occurrence: None)
  Receive Date: 20070109
  Receipt Date: 20061228
  Transmission Date: 20070707
  Serious: Yes (Other)
  Sender: FDA-Public Use
  Company Number: 060001M06DEU

PATIENT
  Age: 27 Year
  Sex: Male
  Weight: 102 kg

DRUGS (5)
  1. CLOMIPHENE CITRATE [Suspect]
     Dosage: 50 MG, 1 IN 1 DAYS
  2. CHORIONIC GONADOTROPIN [Suspect]
     Dosage: 5000 IU
  3. SUSTANON [Concomitant]
  4. TESTOSTERONE [Concomitant]
  5. NANDROLONE DECANOATE [Concomitant]

REACTIONS (1)
  - OPTIC NEURITIS [None]
